APPROVED DRUG PRODUCT: PENICILLIN V POTASSIUM
Active Ingredient: PENICILLIN V POTASSIUM
Strength: EQ 500MG BASE
Dosage Form/Route: TABLET;ORAL
Application: A090549 | Product #002 | TE Code: AB
Applicant: HIKMA PHARMACEUTICALS
Approved: Oct 11, 2013 | RLD: No | RS: No | Type: RX